FAERS Safety Report 7517939-0 (Version None)
Quarter: 2011Q2

REPORT INFORMATION
  Report Type: 
  Country: None (occurrence: None)
  Receive Date: 20110527
  Receipt Date: 20110527
  Transmission Date: 20111010
  Serious: Yes (Other)
  Sender: FDA-Public Use
  Company Number: None

PATIENT
  Age: 70 Year
  Sex: Male

DRUGS (16)
  1. REVLIMID [Suspect]
     Indication: MULTIPLE MYELOMA
     Dosage: REVLIMID 25MG DAILY X21D/28D ORALLY
     Route: 048
     Dates: start: 20090201
  2. TIOTROPIUM [Concomitant]
  3. BENAZEPRIL HYDROCHLORIDE [Concomitant]
  4. PREDNISONE [Concomitant]
  5. POTASSIUM CHLORIDE [Concomitant]
  6. HYDROCODONE BITARTRATE AND ACETAMINOPHEN [Concomitant]
  7. ASPIRIN [Concomitant]
  8. IBUPROFEN [Concomitant]
  9. BECLOMETHASONE [Concomitant]
  10. SIMVASTATIN [Concomitant]
  11. ATENOLOL [Concomitant]
  12. FUROSEMIDE [Concomitant]
  13. METOCLOPRAMIDE [Concomitant]
  14. ALBUTEROL SULFATE AUTOHALER [Concomitant]
  15. LANSOPRAZOLE [Concomitant]
  16. FAMOTIDINE [Concomitant]

REACTIONS (2)
  - FEELING ABNORMAL [None]
  - ORAL DISCOMFORT [None]
